FAERS Safety Report 10704163 (Version 1)
Quarter: 2015Q1

REPORT INFORMATION
  Report Type: Spontaneous
  Country: FR (occurrence: FR)
  Receive Date: 20150112
  Receipt Date: 20150112
  Transmission Date: 20150721
  Serious: Yes (Hospitalization)
  Sender: FDA-Public Use
  Company Number: FR-TEVA-533590ISR

PATIENT
  Age: 1 Year
  Sex: Female
  Weight: 17 kg

DRUGS (4)
  1. VINCRISTINE TEVA 0.1 % (1 MG/1 ML) [Suspect]
     Active Substance: VINCRISTINE
     Dosage: 1 MILLIGRAM DAILY; 4 INJECTIONS
     Route: 041
     Dates: start: 20131127, end: 20140107
  2. DECTANCYL 0.5MG [Suspect]
     Active Substance: DEXAMETHASONE
     Dosage: 4 DOSAGE FORMS DAILY;
     Route: 048
     Dates: start: 20131120, end: 20131218
  3. METHOTREXATE (METHOTREXATE SODIUM) [Suspect]
     Active Substance: METHOTREXATE SODIUM
     Dosage: SINGLE DOSE
     Route: 039
     Dates: start: 20131204
  4. KIDROLASE 2000 UI [Suspect]
     Active Substance: ASPARAGINASE
     Dosage: 4000 IU (INTERNATIONAL UNIT) DAILY; 9 INJECTIONS
     Route: 030
     Dates: start: 20131129, end: 20131215

REACTIONS (1)
  - Meningitis [Recovered/Resolved]

NARRATIVE: CASE EVENT DATE: 20140109
